FAERS Safety Report 20963113 (Version 1)
Quarter: 2022Q2

REPORT INFORMATION
  Report Type: Spontaneous
  Country: US (occurrence: None)
  Receive Date: 20220615
  Receipt Date: 20220615
  Transmission Date: 20220721
  Serious: No
  Sender: FDA-Public Use
  Company Number: None

PATIENT
  Age: 54 Year
  Sex: Male

DRUGS (1)
  1. OPSUMIT [Suspect]
     Active Substance: MACITENTAN
     Indication: Pulmonary arterial hypertension
     Dosage: 10 MG DAILY PO?
     Route: 048
     Dates: start: 201503

REACTIONS (6)
  - COVID-19 [None]
  - Malaise [None]
  - Headache [None]
  - Infusion related reaction [None]
  - Pyrexia [None]
  - Infusion site haemorrhage [None]

NARRATIVE: CASE EVENT DATE: 20220301
